FAERS Safety Report 17871416 (Version 1)
Quarter: 2020Q2

REPORT INFORMATION
  Report Type: Spontaneous
  Country: IT (occurrence: IT)
  Receive Date: 20200608
  Receipt Date: 20200608
  Transmission Date: 20200714
  Serious: Yes (Hospitalization, Other)
  Sender: FDA-Public Use
  Company Number: IT-SHIRE-IT202018481

PATIENT

DRUGS (2)
  1. HUMAN ALBUMIN [Suspect]
     Active Substance: ALBUMIN HUMAN
     Indication: HEPATIC CIRRHOSIS
     Dosage: 40 GRAM, 1X/WEEK
     Route: 042
  2. HUMAN ALBUMIN [Suspect]
     Active Substance: ALBUMIN HUMAN
     Indication: ASCITES
     Dosage: 40 GRAM, 2X A WEEK
     Route: 042

REACTIONS (2)
  - Sepsis [Unknown]
  - Intentional product use issue [Unknown]
